FAERS Safety Report 9089289 (Version 1)
Quarter: 2013Q1

REPORT INFORMATION
  Report Type: Report from Study
  Country: US (occurrence: US)
  Receive Date: 20130131
  Receipt Date: 20130131
  Transmission Date: 20140127
  Serious: No
  Sender: FDA-Public Use
  Company Number: US-ABBOTT-12P-163-1011358-00

PATIENT
  Sex: Female

DRUGS (2)
  1. HUMIRA [Suspect]
     Indication: PRODUCT USED FOR UNKNOWN INDICATION
     Route: 058
     Dates: start: 2005, end: 2010
  2. HUMIRA [Suspect]
     Dosage: UNKNOWN
     Route: 058
     Dates: start: 2010, end: 2010

REACTIONS (2)
  - Urinary tract infection [Unknown]
  - Drug ineffective [Unknown]
